FAERS Safety Report 25469563 (Version 1)
Quarter: 2025Q2

REPORT INFORMATION
  Report Type: Spontaneous
  Country: CA (occurrence: CA)
  Receive Date: 20250623
  Receipt Date: 20250623
  Transmission Date: 20250717
  Serious: Yes (Other)
  Sender: ANI
  Company Number: CA-ANIPHARMA-2025-CA-002000

PATIENT
  Sex: Female

DRUGS (6)
  1. CANDESARTAN CILEXETIL [Suspect]
     Active Substance: CANDESARTAN CILEXETIL
     Indication: Product used for unknown indication
     Route: 048
  2. GLICLAZIDE [Concomitant]
     Active Substance: GLICLAZIDE
  3. IRBESARTAN [Concomitant]
     Active Substance: IRBESARTAN
  4. DICLOFENAC SODIUM [Concomitant]
     Active Substance: DICLOFENAC SODIUM
  5. METFORMIN [Concomitant]
     Active Substance: METFORMIN HYDROCHLORIDE
  6. MOMETASONE [Concomitant]
     Active Substance: MOMETASONE

REACTIONS (6)
  - Bursitis [Unknown]
  - Dizziness [Unknown]
  - Drug ineffective [Unknown]
  - Foot deformity [Unknown]
  - Illness [Unknown]
  - Loss of personal independence in daily activities [Unknown]
